FAERS Safety Report 7463308-1 (Version None)
Quarter: 2011Q2

REPORT INFORMATION
  Report Type: 
  Country: None (occurrence: None)
  Receive Date: 20110506
  Receipt Date: 20110427
  Transmission Date: 20111010
  Serious: Yes (Hospitalization)
  Sender: FDA-Public Use
  Company Number: GB-PFIZER INC-2011062618

PATIENT
  Age: 66 Year
  Sex: Female

DRUGS (2)
  1. CELECOXIB [Suspect]
     Indication: OSTEOARTHRITIS
     Dosage: 400 MG, 2X/DAY
     Route: 048
     Dates: start: 20081022
  2. TRAMADOL [Concomitant]
     Indication: CARPAL TUNNEL SYNDROME
     Dosage: 100 MG, 4X/DAY
     Dates: start: 20071010

REACTIONS (1)
  - CARPAL TUNNEL SYNDROME [None]
